FAERS Safety Report 17887947 (Version 1)
Quarter: 2020Q2

REPORT INFORMATION
  Report Type: Spontaneous
  Country: US (occurrence: US)
  Receive Date: 20200612
  Receipt Date: 20200612
  Transmission Date: 20200714
  Serious: Yes (Other)
  Sender: FDA-Public Use
  Company Number: US-TEVA-2020-US-1247177

PATIENT
  Age: 72 Year
  Sex: Male

DRUGS (5)
  1. CARTIA XT [Suspect]
     Active Substance: DILTIAZEM HYDROCHLORIDE
     Route: 065
  2. ANESTHESIA [Interacting]
     Active Substance: UNSPECIFIED INGREDIENT
     Route: 065
  3. NORVASC [Concomitant]
     Active Substance: AMLODIPINE BESYLATE
     Route: 065
  4. AMLODIPINE BESYLATE. [Concomitant]
     Active Substance: AMLODIPINE BESYLATE
     Route: 065
  5. CARTIA (ACETYLSALICYLIC ACID) [Suspect]
     Active Substance: ASPIRIN
     Route: 065

REACTIONS (9)
  - Tooth injury [Unknown]
  - Blood urine [Unknown]
  - Product administration error [Unknown]
  - Drug interaction [Unknown]
  - Renal impairment [Unknown]
  - Pain in extremity [Unknown]
  - Surgery [Unknown]
  - Product dispensing error [Unknown]
  - Swelling [Unknown]
